FAERS Safety Report 8280719 (Version 2)
Quarter: 2014Q1

REPORT INFORMATION
  Report Type: Report from Study
  Country: DE (occurrence: DE)
  Receive Date: 20111208
  Receipt Date: 20140116
  Transmission Date: 20141002
  Serious: Yes (Hospitalization)
  Sender: FDA-Public Use
  Company Number: DE-GLAXOSMITHKLINE-Z0012883A

PATIENT
  Age: 48 Year
  Sex: Male
  Weight: 98.6 kg

DRUGS (5)
  1. PAZOPANIB [Suspect]
     Indication: RENAL CELL CARCINOMA
     Dosage: 800MG PER DAY
     Route: 048
     Dates: start: 20110920
  2. BISOPROLOL [Concomitant]
  3. AMLODIPINE [Concomitant]
  4. ENALAPRIL [Concomitant]
  5. TORASEMIDE [Concomitant]

REACTIONS (1)
  - Deep vein thrombosis [Recovered/Resolved with Sequelae]
